FAERS Safety Report 8401756-3 (Version None)
Quarter: 2012Q2

REPORT INFORMATION
  Report Type: 
  Country: None (occurrence: None)
  Receive Date: 20120529
  Receipt Date: 20090802
  Transmission Date: 20120825
  Serious: Yes (Death, Hospitalization)
  Sender: FDA-Public Use
  Company Number: 006955

PATIENT
  Age: 89 Year
  Sex: Male

DRUGS (3)
  1. PLETAL [Suspect]
     Indication: PERIPHERAL ARTERIAL OCCLUSIVE DISEASE
     Dosage: 50 MG, BID, ORAL
     Route: 048
     Dates: start: 20080324, end: 20080331
  2. LANSOPRAZOLE [Concomitant]
  3. GANATON (ITOPRIDE HYDROCHLORIDE) [Concomitant]

REACTIONS (6)
  - AORTIC ANEURYSM [None]
  - RENAL FAILURE ACUTE [None]
  - GASTRIC ULCER [None]
  - DEMENTIA [None]
  - CONDITION AGGRAVATED [None]
  - DISSEMINATED INTRAVASCULAR COAGULATION [None]
